FAERS Safety Report 11278380 (Version 1)
Quarter: 2015Q3

REPORT INFORMATION
  Report Type: Spontaneous
  Country: US (occurrence: None)
  Receive Date: 20150715
  Receipt Date: 20150715
  Transmission Date: 20151125
  Serious: No
  Sender: FDA-Public Use
  Company Number: DL2015-0561

PATIENT
  Age: 29 Year
  Sex: Female

DRUGS (2)
  1. MIFEPRISTONE TABLETS 200 MG DANCO LABS [Suspect]
     Active Substance: MIFEPRISTONE
     Indication: ABORTION INDUCED
     Route: 048
     Dates: start: 20150228
  2. MISOPROSTOL TABLETS 200 MCG [Suspect]
     Active Substance: MISOPROSTOL
     Route: 067
     Dates: start: 20150302

REACTIONS (4)
  - Abdominal pain [None]
  - Abortion incomplete [None]
  - Vaginal odour [None]
  - Haemorrhage [None]

NARRATIVE: CASE EVENT DATE: 20150416
